FAERS Safety Report 6531061-1 (Version None)
Quarter: 2010Q1

REPORT INFORMATION
  Report Type: 
  Country: None (occurrence: None)
  Receive Date: 20100108
  Receipt Date: 20091104
  Transmission Date: 20100710
  Serious: No
  Sender: FDA-Public Use
  Company Number: A0815057A

PATIENT
  Age: 40 Year
  Sex: Female

DRUGS (7)
  1. LOVAZA [Suspect]
     Indication: GASTROINTESTINAL DISORDER
     Dosage: 2G TWICE PER DAY
     Route: 048
     Dates: start: 20090527, end: 20090627
  2. PRILOSEC [Concomitant]
  3. SINGULAIR [Concomitant]
  4. ZYRTEC [Concomitant]
  5. CLARITIN [Concomitant]
  6. CENESTIN [Concomitant]
  7. WELCHOL [Concomitant]

REACTIONS (2)
  - ERUCTATION [None]
  - THERAPEUTIC RESPONSE UNEXPECTED [None]
